FAERS Safety Report 7646396-9 (Version None)
Quarter: 2011Q3

REPORT INFORMATION
  Report Type: 
  Country: None (occurrence: None)
  Receive Date: 20110725
  Receipt Date: 20110707
  Transmission Date: 20111222
  Serious: Yes (Other)
  Sender: FDA-Public Use
  Company Number: JHP201100330

PATIENT
  Age: 26 Year
  Sex: Male

DRUGS (8)
  1. ISOFLURANE [Concomitant]
  2. SUCCINYLCHOLINE CHLORIDE [Concomitant]
  3. BICARBONATE (SODIUM BICARBONATE) [Concomitant]
  4. DANTROLENE SODIUM [Suspect]
     Indication: HYPERTHERMIA MALIGNANT
     Dosage: 960 MG, TOTAL, INTRAVENOUS
     Route: 042
  5. LIDOCAINE (LIDOCAINE HYDROCHLORIDE) [Concomitant]
  6. ROCURONIUM BROMIDE [Concomitant]
  7. LASIX [Concomitant]
  8. PROPOFOL [Concomitant]

REACTIONS (6)
  - PHLEBITIS [None]
  - MUSCULAR WEAKNESS [None]
  - DISSEMINATED INTRAVASCULAR COAGULATION [None]
  - RENAL IMPAIRMENT [None]
  - HEPATIC FUNCTION ABNORMAL [None]
  - RESPIRATORY FAILURE [None]
